FAERS Safety Report 10043356 (Version 1)
Quarter: 2014Q1

REPORT INFORMATION
  Report Type: Spontaneous
  Country: US (occurrence: None)
  Receive Date: 20140327
  Receipt Date: 20140327
  Transmission Date: 20141002
  Serious: Yes (Death, Life-Threatening, Hospitalization)
  Sender: FDA-Public Use
  Company Number: None

PATIENT
  Age: 75 Year
  Sex: Female
  Weight: 92.6 kg

DRUGS (4)
  1. ACTEMRA [Suspect]
     Indication: RHEUMATOID ARTHRITIS
     Route: 042
     Dates: start: 20140324, end: 20140324
  2. METOPROLOL [Concomitant]
  3. DICLOFENAC [Concomitant]
  4. LEVOTHYROXINE [Concomitant]

REACTIONS (8)
  - Dyspnoea [None]
  - Chest discomfort [None]
  - Unresponsive to stimuli [None]
  - Pulseless electrical activity [None]
  - General physical health deterioration [None]
  - Acidosis [None]
  - Blood bicarbonate decreased [None]
  - No reaction on previous exposure to drug [None]
